FAERS Safety Report 5794116-5 (Version None)
Quarter: 2008Q2

REPORT INFORMATION
  Report Type: 
  Country: None (occurrence: None)
  Receive Date: 20080627
  Receipt Date: 20080616
  Transmission Date: 20081010
  Serious: Yes (Hospitalization)
  Sender: FDA-Public Use
  Company Number: FR-PFIZER INC-2008050582

PATIENT
  Age: 60 Year
  Sex: Female

DRUGS (1)
  1. RELPAX [Suspect]
     Dosage: TEXT:1 DOSE PRN
     Route: 048
     Dates: start: 20080501, end: 20080512

REACTIONS (2)
  - HYPERTENSION [None]
  - HYPERTENSIVE ENCEPHALOPATHY [None]
